FAERS Safety Report 7961950-2 (Version None)
Quarter: 2011Q4

REPORT INFORMATION
  Report Type: 
  Country: None (occurrence: None)
  Receive Date: 20111207
  Receipt Date: 20111125
  Transmission Date: 20120403
  Serious: Yes (Death)
  Sender: FDA-Public Use
  Company Number: RS-ROCHE-1016740

PATIENT
  Age: 68 Year
  Sex: Male

DRUGS (4)
  1. FLUOROURACIL [Concomitant]
     Indication: COLORECTAL CANCER METASTATIC
     Route: 042
     Dates: end: 20111003
  2. AVASTIN [Suspect]
     Indication: COLORECTAL CANCER METASTATIC
     Route: 042
     Dates: start: 20110803, end: 20111003
  3. LEUCOVORIN CALCIUM [Concomitant]
     Indication: COLORECTAL CANCER METASTATIC
     Route: 042
     Dates: end: 20111003
  4. OXALIPLATIN [Concomitant]
     Indication: COLORECTAL CANCER METASTATIC
     Route: 042
     Dates: end: 20111003

REACTIONS (1)
  - AORTO-OESOPHAGEAL FISTULA [None]
